FAERS Safety Report 13557616 (Version 2)
Quarter: 2017Q2

REPORT INFORMATION
  Report Type: Report from Study
  Country: US (occurrence: US)
  Receive Date: 20170518
  Receipt Date: 20170522
  Transmission Date: 20170830
  Serious: No
  Sender: FDA-Public Use
  Company Number: PHEH2017US014877

PATIENT
  Age: 30 Year
  Sex: Female
  Weight: 75.28 kg

DRUGS (1)
  1. GILENYA [Suspect]
     Active Substance: FINGOLIMOD HYDROCHLORIDE
     Indication: MULTIPLE SCLEROSIS
     Dosage: 0.5 MG, QD
     Route: 048
     Dates: start: 20170512

REACTIONS (10)
  - Confusional state [Unknown]
  - Tinnitus [Unknown]
  - Heart rate increased [Unknown]
  - Speech disorder [Unknown]
  - Fall [Unknown]
  - Gait disturbance [Unknown]
  - Migraine [Unknown]
  - Insomnia [Unknown]
  - Cognitive disorder [Unknown]
  - Muscular weakness [Unknown]

NARRATIVE: CASE EVENT DATE: 20170512
